FAERS Safety Report 14221569 (Version 3)
Quarter: 2018Q1

REPORT INFORMATION
  Report Type: Report from Study
  Country: US (occurrence: US)
  Receive Date: 20171124
  Receipt Date: 20180315
  Transmission Date: 20180508
  Serious: Yes (Other)
  Sender: FDA-Public Use
  Company Number: US-ACTELION-A-NJ2017-157944

PATIENT
  Age: 52 Year
  Sex: Female
  Weight: 80.27 kg

DRUGS (2)
  1. OPSUMIT [Suspect]
     Active Substance: MACITENTAN
     Indication: PULMONARY ARTERIAL HYPERTENSION
     Dosage: 10 MG, QD
     Route: 048
  2. ADCIRCA [Concomitant]
     Active Substance: TADALAFIL

REACTIONS (13)
  - Coronary artery disease [Unknown]
  - Chest pain [Unknown]
  - Nausea [Unknown]
  - Dyspnoea exertional [Unknown]
  - Malaise [Unknown]
  - Spinal cord operation [Unknown]
  - Angina pectoris [Unknown]
  - Pain [Unknown]
  - Peripheral swelling [Unknown]
  - Presyncope [Unknown]
  - Abdominal distension [Unknown]
  - Vomiting [Unknown]
  - Dizziness [Unknown]
